FAERS Safety Report 19205608 (Version 1)
Quarter: 2021Q2

REPORT INFORMATION
  Report Type: Spontaneous
  Country: US (occurrence: US)
  Receive Date: 20210503
  Receipt Date: 20210503
  Transmission Date: 20210717
  Serious: No
  Sender: FDA-Public Use
  Company Number: US-FARMAPROD-202101-0071

PATIENT
  Sex: Female

DRUGS (16)
  1. GABAPENTIN. [Concomitant]
     Active Substance: GABAPENTIN
  2. RESTASIS [Concomitant]
     Active Substance: CYCLOSPORINE
     Dosage: DROPERETTE
  3. METFORMIN [Concomitant]
     Active Substance: METFORMIN HYDROCHLORIDE
     Dosage: EXTENDED RELEASE GASTRIC
  4. REFRESH CLASSIC [Concomitant]
     Active Substance: POLYVINYL ALCOHOL\POVIDONE
  5. ASPIRINE [Concomitant]
     Active Substance: ASPIRIN
  6. PANTOPRAZOLE SODIUM. [Concomitant]
     Active Substance: PANTOPRAZOLE SODIUM
  7. ACICLOVIR [Concomitant]
     Active Substance: ACYCLOVIR
  8. SINGULAIR [Concomitant]
     Active Substance: MONTELUKAST SODIUM
  9. VIVELLE?DOT [Concomitant]
     Active Substance: ESTRADIOL
     Dosage: PATCH
  10. PREDNISOLONE/NEPAFENAC [Concomitant]
  11. CALCIUM/VITAMINE D3 [Concomitant]
     Dosage: 600?500 MG EXTENDED RELEASE
  12. VITAMIN B12 [Concomitant]
     Active Substance: CYANOCOBALAMIN
  13. DULOXETINE HCL [Concomitant]
     Active Substance: DULOXETINE HYDROCHLORIDE
     Dosage: DELAYED RELEASE CAPSULE
  14. CARVEDILOL. [Concomitant]
     Active Substance: CARVEDILOL
  15. OXERVATE [Suspect]
     Active Substance: CENEGERMIN-BKBJ
     Indication: NEUROTROPHIC KERATOPATHY
     Route: 047
     Dates: start: 20201130
  16. PREDNISONE. [Concomitant]
     Active Substance: PREDNISONE

REACTIONS (3)
  - Neoplasm skin [Unknown]
  - Eye pain [Unknown]
  - Skin discolouration [Unknown]
